FAERS Safety Report 13939150 (Version 1)
Quarter: 2017Q3

REPORT INFORMATION
  Report Type: Spontaneous
  Country: BR (occurrence: BR)
  Receive Date: 20170906
  Receipt Date: 20170906
  Transmission Date: 20171127
  Serious: Yes (Other)
  Sender: FDA-Public Use
  Company Number: BR-009507513-1709BRA001238

PATIENT
  Age: 4 Year
  Sex: Male
  Weight: 17 kg

DRUGS (6)
  1. NASONEX [Suspect]
     Active Substance: MOMETASONE FUROATE
     Indication: RHINITIS ALLERGIC
     Dosage: 2 DF, HS
     Route: 045
     Dates: start: 2014
  2. AZITHROMYCIN ANHYDROUS. [Suspect]
     Active Substance: AZITHROMYCIN ANHYDROUS
     Indication: EAR DISORDER
  3. AMOXICILLIN. [Suspect]
     Active Substance: AMOXICILLIN
     Indication: PHARYNGEAL DISORDER
     Dosage: UNK
     Dates: start: 201707
  4. AZITHROMYCIN ANHYDROUS. [Suspect]
     Active Substance: AZITHROMYCIN ANHYDROUS
     Indication: PHARYNGEAL DISORDER
     Dosage: UNK
     Dates: start: 201707
  5. AMOXICILLIN. [Suspect]
     Active Substance: AMOXICILLIN
     Indication: EAR DISORDER
  6. NASONEX [Suspect]
     Active Substance: MOMETASONE FUROATE
     Indication: HYPERSENSITIVITY

REACTIONS (6)
  - Delirium [Recovered/Resolved]
  - Hypothermia [Unknown]
  - Hypothermia [Recovered/Resolved]
  - Delirium [Unknown]
  - Pharyngeal disorder [Unknown]
  - Ear disorder [Unknown]

NARRATIVE: CASE EVENT DATE: 201707
